FAERS Safety Report 25508688 (Version 1)
Quarter: 2025Q3

REPORT INFORMATION
  Report Type: Spontaneous
  Country: EU (occurrence: EU)
  Receive Date: 20250703
  Receipt Date: 20250703
  Transmission Date: 20251020
  Serious: Yes (Hospitalization, Other)
  Sender: AUROBINDO
  Company Number: EU-ADIENNEP-2019AD000173

PATIENT
  Age: 42 Year
  Sex: Female

DRUGS (7)
  1. MYCOPHENOLIC ACID [Suspect]
     Active Substance: MYCOPHENOLIC ACID
     Indication: Prophylaxis against graft versus host disease
     Dosage: 2 GRAM, ONCE A DAY
     Route: 065
     Dates: start: 20171115
  2. FLUDARABINE [Suspect]
     Active Substance: FLUDARABINE PHOSPHATE
     Indication: Stem cell transplant
     Dosage: 50 MILLIGRAM/SQ. METER, ONCE A DAY ON DAYS -4-3-2
     Route: 065
     Dates: start: 20171110, end: 20171112
  3. CYCLOPHOSPHAMIDE [Suspect]
     Active Substance: CYCLOPHOSPHAMIDE
     Indication: Prophylaxis against graft versus host disease
     Dosage: 1 DOSAGE 30 MG/KG EVERY 2 DAY(S) ON DAY +3 AND +5
     Route: 065
     Dates: start: 20171117, end: 20171119
  4. CYCLOSPORINE [Suspect]
     Active Substance: CYCLOSPORINE
     Indication: Prophylaxis against graft versus host disease
     Route: 042
     Dates: start: 20171114
  5. CYCLOSPORINE [Suspect]
     Active Substance: CYCLOSPORINE
     Route: 048
     Dates: start: 20171204
  6. THIOTEPA [Suspect]
     Active Substance: THIOTEPA
     Indication: Stem cell transplant
     Dosage: 5 MG/KG ON DAYS-6 AND -5
     Route: 065
     Dates: start: 20171108, end: 20171109
  7. BUSULFAN [Suspect]
     Active Substance: BUSULFAN
     Indication: Stem cell transplant
     Route: 042
     Dates: start: 20171110, end: 20171112

REACTIONS (3)
  - Influenza [Unknown]
  - Pyrexia [Unknown]
  - Graft versus host disease in skin [Unknown]

NARRATIVE: CASE EVENT DATE: 20171204
